FAERS Safety Report 10238955 (Version 3)
Quarter: 2014Q3

REPORT INFORMATION
  Report Type: Spontaneous
  Country: US (occurrence: None)
  Receive Date: 20140612
  Receipt Date: 20140922
  Transmission Date: 20150326
  Serious: Yes (Death, Other)
  Sender: FDA-Public Use
  Company Number: 2014US003178

PATIENT
  Age: 53 Year
  Sex: Male
  Weight: 121 kg

DRUGS (13)
  1. DEXAMETHASONE (DEXAMETHASONE) [Concomitant]
     Active Substance: DEXAMETHASONE
  2. VORICONAZOLE (VORICONAZOLE) [Concomitant]
     Active Substance: VORICONAZOLE
  3. ICLUSIG [Suspect]
     Active Substance: PONATINIB
     Indication: ACUTE MONOCYTIC LEUKAEMIA
     Route: 048
     Dates: start: 20140221, end: 20140319
  4. VALTREX [Concomitant]
     Active Substance: VALACYCLOVIR HYDROCHLORIDE
  5. LORAZEPAM (LORAZEPAM) [Concomitant]
     Active Substance: LORAZEPAM
  6. MOXIFLOXACIN (MOXIFLOXACIN) [Concomitant]
     Active Substance: MOXIFLOXACIN
  7. OMEPRAZOLE (OMEPRAZOLE) [Concomitant]
     Active Substance: OMEPRAZOLE
  8. ONDANSETRON HYDROCHLORIDE ( ONDANSETRON HYDROCHLORIDE) [Concomitant]
  9. OXYCONTIN (OXYCODONE) [Concomitant]
  10. LEVETIRACETAM (LEVETIRACETAM) [Concomitant]
     Active Substance: LEVETIRACETAM
  11. LORATADINE (LORATADINE) (LORATADINE) [Concomitant]
     Active Substance: LORATADINE
  12. DOCUSATE SODIUM (DOCUSATE SODIUM) [Concomitant]
     Active Substance: DOCUSATE SODIUM
  13. FUROSEMIDE (FUROSEMIDE) [Concomitant]
     Active Substance: FUROSEMIDE

REACTIONS (11)
  - Retinopathy [None]
  - Chloroma [None]
  - Condition aggravated [None]
  - Transaminases increased [None]
  - Pancytopenia [None]
  - Malignant neoplasm progression [None]
  - Bone marrow transplant [None]
  - Acute monocytic leukaemia [None]
  - Leukaemia recurrent [None]
  - Platelet count decreased [None]
  - Off label use [None]

NARRATIVE: CASE EVENT DATE: 20131227
